FAERS Safety Report 4954402-5 (Version None)
Quarter: 2006Q1

REPORT INFORMATION
  Report Type: 
  Country: None (occurrence: None)
  Receive Date: 20060322
  Receipt Date: 20060309
  Transmission Date: 20060701
  Serious: Yes (Other)
  Sender: FDA-Public Use
  Company Number: 2006030568

PATIENT
  Age: 40 Year
  Sex: Female

DRUGS (2)
  1. CLINDAMYCIN PHOSPHATE [Suspect]
     Indication: INFECTION
     Dosage: 1200 MG, INTRAVENOUS
     Route: 042
     Dates: start: 20060228, end: 20060301
  2. CEFMETAZON (CEFMETAZOLE SODIUM) [Concomitant]

REACTIONS (2)
  - DEAFNESS [None]
  - TINNITUS [None]
